FAERS Safety Report 9585920 (Version 1)
Quarter: 2013Q4

REPORT INFORMATION
  Report Type: Spontaneous
  Country: US (occurrence: None)
  Receive Date: 20131002
  Receipt Date: 20131002
  Transmission Date: 20140711
  Serious: Yes (Hospitalization)
  Sender: FDA-Public Use
  Company Number: None

PATIENT
  Age: 43 Year
  Sex: Male

DRUGS (3)
  1. CLARITHROMYCIN [Suspect]
     Indication: HELICOBACTER INFECTION
     Dosage: 1 DOSE BID ORAL
     Route: 048
     Dates: start: 20130501, end: 20130508
  2. OMEPRAZOLE [Concomitant]
  3. AMOXICILLIN [Concomitant]

REACTIONS (1)
  - Convulsion [None]
